FAERS Safety Report 25666026 (Version 1)
Quarter: 2025Q3

REPORT INFORMATION
  Report Type: Spontaneous
  Country: US (occurrence: US)
  Receive Date: 20250811
  Receipt Date: 20250811
  Transmission Date: 20251021
  Serious: Yes (Hospitalization, Other)
  Sender: SANOFI AVENTIS
  Company Number: US-DialogSolutions-SAAVPROD-PI809273-C1

PATIENT
  Age: 10 Year
  Sex: Female

DRUGS (3)
  1. OXALIPLATIN [Suspect]
     Active Substance: OXALIPLATIN
     Indication: Germ cell cancer
  2. GEMCITABINE [Suspect]
     Active Substance: GEMCITABINE
     Indication: Germ cell cancer
  3. PACLITAXEL [Suspect]
     Active Substance: PACLITAXEL
     Indication: Germ cell cancer

REACTIONS (17)
  - Venoocclusive liver disease [Recovered/Resolved]
  - Abdominal pain upper [Recovered/Resolved]
  - Pyrexia [Recovered/Resolved]
  - Hepatomegaly [Recovered/Resolved]
  - Hypertransaminasaemia [Recovered/Resolved]
  - Abdominal pain [Recovered/Resolved]
  - Thrombocytopenia [Recovered/Resolved]
  - Fluid retention [Recovered/Resolved]
  - Hyperbilirubinaemia [Recovered/Resolved]
  - Ascites [Recovered/Resolved]
  - Hypotension [Recovered/Resolved]
  - Acute respiratory distress syndrome [Recovered/Resolved]
  - Pneumonia staphylococcal [Unknown]
  - Bronchopulmonary aspergillosis [Unknown]
  - Urosepsis [Unknown]
  - Escherichia infection [Unknown]
  - Off label use [Unknown]
